FAERS Safety Report 25600232 (Version 1)
Quarter: 2025Q3

REPORT INFORMATION
  Report Type: Spontaneous
  Country: US (occurrence: US)
  Receive Date: 20250724
  Receipt Date: 20250724
  Transmission Date: 20251021
  Serious: Yes (Hospitalization, Other)
  Sender: EMD SERONO INC
  Company Number: US-Merck Healthcare KGaA-2025036567

PATIENT
  Age: 43 Year
  Sex: Female

DRUGS (4)
  1. MAVENCLAD [Suspect]
     Active Substance: CLADRIBINE
     Indication: Multiple sclerosis
     Dates: start: 202404
  2. MAVENCLAD [Suspect]
     Active Substance: CLADRIBINE
     Dates: start: 202405
  3. MAVENCLAD [Suspect]
     Active Substance: CLADRIBINE
     Dates: start: 202504
  4. MAVENCLAD [Suspect]
     Active Substance: CLADRIBINE
     Dates: start: 202505

REACTIONS (7)
  - Syncope [Unknown]
  - Hypotension [Recovered/Resolved]
  - Fatigue [Recovered/Resolved]
  - Feeling hot [Unknown]
  - Cataplexy [Unknown]
  - Paralysis [Unknown]
  - Alopecia [Unknown]

NARRATIVE: CASE EVENT DATE: 20250712
